FAERS Safety Report 8335809-5 (Version None)
Quarter: 2012Q2

REPORT INFORMATION
  Report Type: 
  Country: None (occurrence: None)
  Receive Date: 20120504
  Receipt Date: 20101203
  Transmission Date: 20120825
  Serious: Yes (Disabling, Other)
  Sender: FDA-Public Use
  Company Number: US-BAYER-US-2007-006384

PATIENT
  Age: 31 Year
  Sex: Male
  Weight: 44 kg

DRUGS (24)
  1. CENTRUM [Concomitant]
  2. DIOVAN [Concomitant]
  3. CALCIUM ACETATE [Concomitant]
  4. EPOGEN [Concomitant]
     Dosage: 5000 UNK, 3X/WEEK
  5. MAGNEVIST [Suspect]
     Indication: ANGIOGRAM
     Dosage: 60 ML, 1 DOSE
     Route: 042
     Dates: start: 20030429, end: 20030429
  6. MAGNEVIST [Suspect]
     Indication: TRANSPLANT EVALUATION
  7. EPOETIN ALFA [Concomitant]
     Dosage: 5000 UNK, 3X/WEEK
  8. LANSOPRAZOLE [Concomitant]
     Dosage: 30 MG, 1X/DAY
     Route: 048
  9. CARBAMAZEPINE [Concomitant]
  10. MAGNEVIST [Suspect]
     Indication: NUCLEAR MAGNETIC RESONANCE IMAGING
  11. CLONAZEPAM [Concomitant]
  12. PARACETAMOL WITH CODEINE PHOSPHATE [Concomitant]
     Dosage: UNK
  13. OMNISCAN [Suspect]
     Indication: IMAGING PROCEDURE
     Dosage: UNK
     Dates: start: 20030514, end: 20030514
  14. RENAGEL [Concomitant]
     Dosage: 1600 MG, 3X/DAY
     Route: 048
  15. NEPHROCAPS [Concomitant]
  16. LORAZEPAM [Concomitant]
  17. FLUDROCORTISONE ACETATE [Concomitant]
  18. ASPIRIN [Concomitant]
  19. METOPROLOL TARTRATE [Concomitant]
  20. IOPROMIDE [Concomitant]
     Indication: ARTERIOGRAM CORONARY
     Dosage: 80 ML, 1 DOSE
  21. ACETAMINOPHEN [Concomitant]
  22. VERAPAMIL HYDROCHLORIDE [Concomitant]
  23. IRON [Concomitant]
  24. GABAPENTIN [Concomitant]
     Dosage: 100 MG, BED T.
     Route: 048

REACTIONS (17)
  - DEFORMITY [None]
  - EXTREMITY CONTRACTURE [None]
  - SKIN HYPERTROPHY [None]
  - SKIN HYPERPIGMENTATION [None]
  - MUSCULOSKELETAL STIFFNESS [None]
  - FATIGUE [None]
  - NEPHROGENIC SYSTEMIC FIBROSIS [None]
  - GENERAL PHYSICAL HEALTH DETERIORATION [None]
  - MOBILITY DECREASED [None]
  - ARTHRALGIA [None]
  - SKIN FIBROSIS [None]
  - RASH PAPULAR [None]
  - SKIN DISORDER [None]
  - SCAR [None]
  - PAIN [None]
  - SKIN DISCOLOURATION [None]
  - JOINT CONTRACTURE [None]
